FAERS Safety Report 7880310-6 (Version None)
Quarter: 2011Q4

REPORT INFORMATION
  Report Type: 
  Country: None (occurrence: None)
  Receive Date: 20111101
  Receipt Date: 20111024
  Transmission Date: 20120403
  Serious: Yes (Hospitalization, Other)
  Sender: FDA-Public Use
  Company Number: US-PFIZER INC-2011259349

PATIENT
  Age: 79 Year
  Sex: Male

DRUGS (1)
  1. DISOPYRAMIDE PHOSPHATE [Suspect]
     Dosage: 150 MG, 2X/DAY

REACTIONS (3)
  - DYSARTHRIA [None]
  - HYPOGLYCAEMIA [None]
  - POSTURE ABNORMAL [None]
